FAERS Safety Report 4601881-9 (Version None)
Quarter: 2005Q1

REPORT INFORMATION
  Report Type: 
  Country: None (occurrence: None)
  Receive Date: 20050308
  Receipt Date: 20050301
  Transmission Date: 20050727
  Serious: Yes (Hospitalization, Other)
  Sender: FDA-Public Use
  Company Number: FR-ABBOTT-05P-056-0292462-00

PATIENT
  Age: 67 Year
  Sex: Male

DRUGS (5)
  1. SECALIP CAPSULES [Suspect]
     Indication: DYSLIPIDAEMIA
     Route: 048
     Dates: start: 19840101, end: 20041222
  2. ACETAMINOPHEN W/ PROPOXYPHENE HCL [Concomitant]
     Indication: DRUG USE FOR UNKNOWN INDICATION
     Dates: start: 20041218, end: 20041222
  3. CLOXACILLIN SODIUM [Concomitant]
     Indication: DRUG USE FOR UNKNOWN INDICATION
     Dates: start: 20041219, end: 20041222
  4. PANTOPRAZOLE [Concomitant]
     Indication: DRUG USE FOR UNKNOWN INDICATION
     Dates: end: 20041222
  5. ALFUZOSIN HYDROCHLORIDE [Concomitant]
     Indication: DRUG USE FOR UNKNOWN INDICATION

REACTIONS (7)
  - ARTHROPATHY [None]
  - ASPARTATE AMINOTRANSFERASE INCREASED [None]
  - FUNGAL INFECTION [None]
  - HAEMATURIA [None]
  - MUSCLE DISORDER [None]
  - PAIN [None]
  - RHABDOMYOLYSIS [None]
